FAERS Safety Report 8607020 (Version 4)
Quarter: 2014Q2

REPORT INFORMATION
  Report Type: Spontaneous
  Country: US (occurrence: US)
  Receive Date: 20120611
  Receipt Date: 20140416
  Transmission Date: 20141212
  Serious: Yes (Hospitalization, Other)
  Sender: FDA-Public Use
  Company Number: US-ASTRAZENECA-2012SE35857

PATIENT
  Age: 531 Month
  Sex: Female

DRUGS (23)
  1. NEXIUM [Suspect]
     Indication: BONE DISORDER
     Dosage: ONCE EVERY NIGHT
     Route: 048
     Dates: start: 1999, end: 2011
  2. NEXIUM [Suspect]
     Indication: BONE DISORDER
     Route: 048
     Dates: start: 20090617
  3. NEXIUM [Suspect]
     Indication: BONE DISORDER
     Route: 048
     Dates: start: 20040415
  4. PEPTO-BISMOL [Concomitant]
  5. METFORMIN [Concomitant]
  6. METFORMIN [Concomitant]
     Route: 048
     Dates: start: 20041227
  7. LEVOTHYROXINE [Concomitant]
  8. LEVOTHYROXINE [Concomitant]
     Route: 048
     Dates: start: 20040101
  9. LORATADINE [Concomitant]
  10. HYDROCODONE [Concomitant]
  11. HYDROXYZINE HYDROCHLORIDE [Concomitant]
  12. TYLENOL [Concomitant]
  13. SINUS [Concomitant]
  14. HYDROCODONE/ACETAMINOPHEN [Concomitant]
     Dosage: 5-500 MG EVERY 6 HRS DAILY
     Route: 048
     Dates: start: 20050720
  15. SULFAMETH/TRIMETHOPRIM [Concomitant]
     Dosage: 800/160
     Route: 048
     Dates: start: 20100318
  16. ZOFRAN [Concomitant]
     Route: 048
     Dates: start: 20090110
  17. SINGULAIR [Concomitant]
     Route: 048
     Dates: start: 20070509
  18. FERROUS SULPHATE [Concomitant]
     Route: 048
     Dates: start: 20040506
  19. VITAMIN C [Concomitant]
     Dosage: ?
     Route: 048
     Dates: start: 20060113
  20. CYMBALTA [Concomitant]
     Route: 048
     Dates: start: 20060418
  21. METRONIDAZOLE [Concomitant]
     Route: 048
     Dates: start: 20050622
  22. PREVACID [Concomitant]
     Route: 048
     Dates: start: 20020611
  23. SYNTHROID [Concomitant]
     Route: 048
     Dates: start: 20120123

REACTIONS (14)
  - Hip fracture [Unknown]
  - Intervertebral disc degeneration [Unknown]
  - Fall [Unknown]
  - Muscle spasms [Unknown]
  - Upper limb fracture [Unknown]
  - Osteoporosis [Unknown]
  - Wrist fracture [Unknown]
  - Bone density decreased [Unknown]
  - Cataract [Unknown]
  - Arthritis [Unknown]
  - Hypothyroidism [Unknown]
  - Hand fracture [Unknown]
  - Bone loss [Unknown]
  - Humerus fracture [Unknown]
